FAERS Safety Report 4898853-6 (Version None)
Quarter: 2006Q1

REPORT INFORMATION
  Report Type: 
  Country: None (occurrence: None)
  Receive Date: 20060202
  Receipt Date: 20051222
  Transmission Date: 20060701
  Serious: Yes (Hospitalization)
  Sender: FDA-Public Use
  Company Number: DE-GLAXOSMITHKLINE-D0048300A

PATIENT
  Age: 39 Year
  Sex: Male
  Weight: 84 kg

DRUGS (5)
  1. TELZIR [Suspect]
     Indication: HIV INFECTION
     Dosage: 700MG UNKNOWN
     Route: 048
     Dates: start: 20050725, end: 20051220
  2. VIREAD [Concomitant]
     Indication: HIV INFECTION
     Dosage: 245MG PER DAY
     Route: 048
  3. RETROVIR [Concomitant]
     Indication: HIV INFECTION
     Dosage: 250MG TWICE PER DAY
     Route: 048
  4. NORVIR [Concomitant]
     Indication: HIV INFECTION
     Dosage: 100MG TWICE PER DAY
     Route: 048
     Dates: start: 20040801, end: 20051201
  5. VIANI [Concomitant]
     Dosage: 1PUFF TWICE PER DAY
     Route: 055

REACTIONS (4)
  - FACE OEDEMA [None]
  - FLUID RETENTION [None]
  - OEDEMA PERIPHERAL [None]
  - WEIGHT INCREASED [None]
